FAERS Safety Report 21724109 (Version 1)
Quarter: 2022Q4

REPORT INFORMATION
  Report Type: Spontaneous
  Country: GB (occurrence: GB)
  Receive Date: 20221213
  Receipt Date: 20221213
  Transmission Date: 20230113
  Serious: Yes (Other)
  Sender: FDA-Public Use
  Company Number: None

PATIENT
  Sex: Male
  Weight: 57 kg

DRUGS (5)
  1. PRED FORTE [Suspect]
     Active Substance: PREDNISOLONE ACETATE
     Indication: Product used for unknown indication
  2. MAXITROL [Suspect]
     Active Substance: DEXAMETHASONE\NEOMYCIN SULFATE\POLYMYXIN B SULFATE
     Dosage: 1 GTT, QID
     Dates: start: 20221112, end: 20221114
  3. NIFEDIPINE [Concomitant]
     Active Substance: NIFEDIPINE
  4. SIMVASTATIN [Concomitant]
     Active Substance: SIMVASTATIN
  5. VALSARTAN [Concomitant]
     Active Substance: VALSARTAN

REACTIONS (3)
  - Hypertension [Recovering/Resolving]
  - Lethargy [Unknown]
  - Fatigue [Unknown]

NARRATIVE: CASE EVENT DATE: 20221113
